FAERS Safety Report 8676792 (Version 2)
Quarter: 2013Q4

REPORT INFORMATION
  Report Type: Spontaneous
  Country: US (occurrence: US)
  Receive Date: 20120723
  Receipt Date: 20131101
  Transmission Date: 20140711
  Serious: No
  Sender: FDA-Public Use
  Company Number: US-009507513-1206USA05598

PATIENT
  Sex: 0

DRUGS (1)
  1. COSOPT [Suspect]
     Dosage: 10 ML DISPENSER
     Route: 047

REACTIONS (5)
  - Burning sensation [Unknown]
  - Medication residue present [Unknown]
  - Product gel formation [Unknown]
  - Eyelid irritation [Unknown]
  - Eyelids pruritus [Unknown]
